FAERS Safety Report 8029233-2 (Version None)
Quarter: 2012Q1

REPORT INFORMATION
  Report Type: 
  Country: None (occurrence: None)
  Receive Date: 20120106
  Receipt Date: 20120105
  Transmission Date: 20120608
  Serious: Yes (Hospitalization, Other)
  Sender: FDA-Public Use
  Company Number: PHHY2011NL94703

PATIENT
  Sex: Female

DRUGS (4)
  1. ZOMETA [Suspect]
     Dosage: 4 MG/ 5 ML ONCE PER 28 DAYS
     Route: 042
     Dates: start: 20111027
  2. ZOMETA [Suspect]
     Indication: BREAST CANCER METASTATIC
     Dosage: 4 MG/ 5 ML ONCE PER 28 DAYS
     Route: 042
     Dates: start: 20100913
  3. ZOMETA [Suspect]
     Dosage: 4 MG/ 5 ML ONCE PER 28 DAYS
     Route: 042
     Dates: start: 20110929
  4. XELODA [Concomitant]
     Dosage: 500 MG, BID
     Route: 065

REACTIONS (3)
  - TERMINAL STATE [None]
  - PLEURAL EFFUSION [None]
  - DYSPNOEA [None]
